FAERS Safety Report 15358646 (Version 2)
Quarter: 2018Q3

REPORT INFORMATION
  Report Type: Spontaneous
  Country: FR (occurrence: FR)
  Receive Date: 20180906
  Receipt Date: 20180912
  Transmission Date: 20181010
  Serious: Yes (Hospitalization)
  Sender: FDA-Public Use
  Company Number: FR-INDIVIOR LIMITED-INDV-113714-2018

PATIENT
  Age: 42 Year
  Sex: Male

DRUGS (1)
  1. SUBUTEX [Suspect]
     Active Substance: BUPRENORPHINE HYDROCHLORIDE
     Indication: PRODUCT USED FOR UNKNOWN INDICATION
     Dosage: UNK
     Route: 042

REACTIONS (4)
  - Intentional product misuse [Not Recovered/Not Resolved]
  - Haemorrhage [Recovered/Resolved]
  - Drug abuse [Not Recovered/Not Resolved]
  - Lymphoedema [Recovering/Resolving]

NARRATIVE: CASE EVENT DATE: 20180630
